FAERS Safety Report 5678673-5 (Version None)
Quarter: 2008Q1

REPORT INFORMATION
  Report Type: 
  Country: None (occurrence: None)
  Receive Date: 20080321
  Receipt Date: 20080310
  Transmission Date: 20080703
  Serious: Yes (Hospitalization, Disabling)
  Sender: FDA-Public Use
  Company Number: 230764J08USA

PATIENT
  Age: 55 Year
  Sex: Female
  Weight: 77.1115 kg

DRUGS (2)
  1. REBIF [Suspect]
     Indication: MULTIPLE SCLEROSIS
     Dosage: 44 MCG, 3 IN 1 WEEKS, SUBCUTANEOUS
     Route: 058
     Dates: start: 20060101, end: 20060114
  2. VYTORIN [Concomitant]

REACTIONS (13)
  - ABASIA [None]
  - APHASIA [None]
  - BRAIN OEDEMA [None]
  - CARDIAC FAILURE CONGESTIVE [None]
  - DIALYSIS [None]
  - FEEDING DISORDER [None]
  - FUNGAL OESOPHAGITIS [None]
  - HYPOTENSION [None]
  - HYPOTONIC URINARY BLADDER [None]
  - KIDNEY INFECTION [None]
  - PNEUMONIA [None]
  - RENAL FAILURE ACUTE [None]
  - THROMBOTIC THROMBOCYTOPENIC PURPURA [None]
